FAERS Safety Report 9295965 (Version 1)
Quarter: 2013Q1

REPORT INFORMATION
  Report Type: Spontaneous
  Country: US (occurrence: None)
  Receive Date: 20121227
  Receipt Date: 20121227
  Transmission Date: 20140127
  Serious: No
  Sender: FDA-Public Use
  Company Number: PHEH2012US021730

PATIENT
  Sex: Female

DRUGS (5)
  1. AFINITOR [Suspect]
     Route: 048
  2. LEVOTHYROXIN (LEVOTHYROXINE SODIUM) [Concomitant]
  3. LOSARTAN POTASSIUM (LOSARTAN POTASSIUM) [Concomitant]
  4. ALEVE (NAPROXEN SODIUM) [Concomitant]
  5. ZOMETA (ZOLEDRONIC ACID) [Concomitant]

REACTIONS (3)
  - Pain in extremity [None]
  - Cough [None]
  - Decreased appetite [None]
